FAERS Safety Report 5379783-2 (Version None)
Quarter: 2007Q3

REPORT INFORMATION
  Report Type: 
  Country: None (occurrence: None)
  Receive Date: 20070706
  Receipt Date: 20070627
  Transmission Date: 20080115
  Serious: Yes (Other)
  Sender: FDA-Public Use
  Company Number: PHBS2007JP10988

PATIENT
  Age: 77 Year
  Sex: Female

DRUGS (2)
  1. PARLODEL [Suspect]
     Indication: PARKINSON'S DISEASE
     Dosage: 3 DF/DAY
     Route: 048
     Dates: end: 20061001
  2. SYMMETREL [Suspect]
     Indication: PARKINSON'S DISEASE
     Dosage: 1 DF/DAY
     Route: 048
     Dates: start: 20020901

REACTIONS (3)
  - DECREASED APPETITE [None]
  - HALLUCINATION, VISUAL [None]
  - TORTICOLLIS [None]
